FAERS Safety Report 5176483-9 (Version None)
Quarter: 2006Q4

REPORT INFORMATION
  Report Type: 
  Country: None (occurrence: None)
  Receive Date: 20061215
  Receipt Date: 20061207
  Transmission Date: 20070319
  Serious: Yes (Hospitalization)
  Sender: FDA-Public Use
  Company Number: CH-SANOFI-SYNTHELABO-A01200610678

PATIENT
  Age: 48 Year
  Sex: Female

DRUGS (3)
  1. LORAMET [Suspect]
     Indication: SUICIDE ATTEMPT
     Route: 048
     Dates: start: 20060613, end: 20060613
  2. SERESTA [Suspect]
     Indication: SUICIDE ATTEMPT
     Route: 065
     Dates: start: 20060613, end: 20060613
  3. ZOLPIDEM TARTRATE [Suspect]
     Indication: SUICIDE ATTEMPT
     Route: 065
     Dates: start: 20060613, end: 20060613

REACTIONS (3)
  - COMA [None]
  - INTENTIONAL OVERDOSE [None]
  - RESPIRATORY ACIDOSIS [None]
